FAERS Safety Report 6804241-5 (Version None)
Quarter: 2010Q2

REPORT INFORMATION
  Report Type: 
  Country: None (occurrence: None)
  Receive Date: 20100628
  Receipt Date: 20070207
  Transmission Date: 20101027
  Serious: No
  Sender: FDA-Public Use
  Company Number: US-PFIZER INC-2007009062

PATIENT
  Sex: Female

DRUGS (2)
  1. XALATAN [Suspect]
     Indication: GLAUCOMA
     Dates: start: 20070122
  2. ANTIHYPERTENSIVES [Concomitant]
     Indication: BLOOD PRESSURE

REACTIONS (4)
  - EYE IRRITATION [None]
  - INCORRECT DOSE ADMINISTERED [None]
  - OCULAR HYPERAEMIA [None]
  - PHOTOPSIA [None]
